FAERS Safety Report 8929063 (Version 1)
Quarter: 2012Q4

REPORT INFORMATION
  Report Type: 
  Country: US (occurrence: US)
  Receive Date: 20121127
  Receipt Date: 20121127
  Transmission Date: 20130627
  Serious: Yes (Hospitalization)
  Sender: FDA-Public Use
  Company Number: US-MYLANLABS-2012S1023687

PATIENT
  Age: 74 Year
  Sex: Female

DRUGS (1)
  1. MIDODRINE [Suspect]
     Indication: HYPOTENSION
     Route: 048

REACTIONS (1)
  - Stress cardiomyopathy [Recovered/Resolved]
